FAERS Safety Report 14477438 (Version 1)
Quarter: 2018Q1

REPORT INFORMATION
  Report Type: Report from Study
  Country: US (occurrence: US)
  Receive Date: 20180201
  Receipt Date: 20180201
  Transmission Date: 20180509
  Serious: No
  Sender: FDA-Public Use
  Company Number: US-EXELIXIS-CABO-17010359

PATIENT
  Age: 75 Year
  Sex: Female
  Weight: 55.78 kg

DRUGS (15)
  1. ESCITALOPRAM [Concomitant]
     Active Substance: ESCITALOPRAM OXALATE
  2. BIOTIN [Concomitant]
     Active Substance: BIOTIN
  3. CABOMETYX [Suspect]
     Active Substance: CABOZANTINIB S-MALATE
     Indication: RENAL CANCER
     Dosage: 40 MG, QD
     Route: 048
     Dates: start: 201708, end: 2017
  4. CALCIUM + D3 [Concomitant]
     Active Substance: CALCIUM\CHOLECALCIFEROL
  5. NORVASC [Concomitant]
     Active Substance: AMLODIPINE BESYLATE
  6. RESTASIS [Concomitant]
     Active Substance: CYCLOSPORINE
  7. CITALOPRAM [Concomitant]
     Active Substance: CITALOPRAM HYDROBROMIDE
  8. RANITIDINE. [Concomitant]
     Active Substance: RANITIDINE
  9. LEVOTHYROXINE. [Concomitant]
     Active Substance: LEVOTHYROXINE
  10. CETIRIZINE [Concomitant]
     Active Substance: CETIRIZINE HYDROCHLORIDE
  11. FIBER LAX [Concomitant]
     Active Substance: CALCIUM POLYCARBOPHIL
  12. MULTIPLE VITAMINS [Concomitant]
     Active Substance: VITAMINS
  13. ZANTAC [Concomitant]
     Active Substance: RANITIDINE HYDROCHLORIDE
  14. LEVOTHYROXINE SODIUM. [Concomitant]
     Active Substance: LEVOTHYROXINE SODIUM
  15. MIDODRINE [Concomitant]
     Active Substance: MIDODRINE

REACTIONS (6)
  - Mouth swelling [Recovered/Resolved]
  - Dysphagia [Recovered/Resolved]
  - Mouth haemorrhage [Unknown]
  - Hypertension [Recovering/Resolving]
  - Headache [Unknown]
  - Pharyngeal oedema [Recovered/Resolved]

NARRATIVE: CASE EVENT DATE: 20170829
